FAERS Safety Report 7134214-7 (Version None)
Quarter: 2010Q4

REPORT INFORMATION
  Report Type: 
  Country: None (occurrence: None)
  Receive Date: 20101203
  Receipt Date: 20101122
  Transmission Date: 20110411
  Serious: Yes (Death, Hospitalization)
  Sender: FDA-Public Use
  Company Number: US-CELGENEUS-163-21880-10081811

PATIENT
  Sex: Male

DRUGS (5)
  1. REVLIMID [Suspect]
     Indication: MULTIPLE MYELOMA
     Route: 048
     Dates: start: 20100719
  2. REVLIMID [Suspect]
     Route: 048
     Dates: start: 20100816, end: 20100818
  3. LYRICA [Concomitant]
     Indication: DEPRESSION
     Route: 048
     Dates: start: 20101001
  4. PRILOSEC [Concomitant]
     Route: 048
  5. ASPIRIN [Concomitant]
     Route: 065

REACTIONS (3)
  - DEEP VEIN THROMBOSIS [None]
  - METASTATIC NEOPLASM [None]
  - PULMONARY EMBOLISM [None]
